FAERS Safety Report 4784714-X (Version None)
Quarter: 2005Q3

REPORT INFORMATION
  Report Type: 
  Country: None (occurrence: None)
  Receive Date: 20050930
  Receipt Date: 20050822
  Transmission Date: 20060218
  Serious: Yes (Other)
  Sender: FDA-Public Use
  Company Number: AU-ROCHE-415366

PATIENT
  Age: 25 Year
  Sex: Male
  Weight: 76 kg

DRUGS (3)
  1. ROACCUTANE [Suspect]
     Indication: ACNE
     Route: 048
     Dates: start: 20050609
  2. ROACCUTANE [Suspect]
     Route: 048
     Dates: start: 20050804
  3. ROACCUTANE [Suspect]
     Route: 048
     Dates: start: 20050915

REACTIONS (4)
  - BLISTER [None]
  - BURNING SENSATION [None]
  - LIP PAIN [None]
  - TREMOR [None]
